FAERS Safety Report 4992885-5 (Version None)
Quarter: 2006Q2

REPORT INFORMATION
  Report Type: 
  Country: None (occurrence: None)
  Receive Date: 20060504
  Receipt Date: 20051020
  Transmission Date: 20061013
  Serious: Yes (Hospitalization)
  Sender: FDA-Public Use
  Company Number: US-MERCK-0510USA08173

PATIENT
  Age: 70 Year
  Sex: Male
  Weight: 100 kg

DRUGS (1)
  1. VIOXX [Suspect]
     Indication: ARTHRITIS
     Route: 048
     Dates: start: 20000103, end: 20001203

REACTIONS (7)
  - ARTHROPATHY [None]
  - CEREBRAL INFARCTION [None]
  - CEREBROVASCULAR ACCIDENT [None]
  - CEREBROVASCULAR INSUFFICIENCY [None]
  - INSOMNIA [None]
  - OESOPHAGEAL HAEMORRHAGE [None]
  - TRANSIENT ISCHAEMIC ATTACK [None]
